FAERS Safety Report 7310369-6 (Version None)
Quarter: 2011Q1

REPORT INFORMATION
  Report Type: 
  Country: None (occurrence: None)
  Receive Date: 20110210
  Receipt Date: 20110202
  Transmission Date: 20110831
  Serious: Yes (Death, Hospitalization)
  Sender: FDA-Public Use
  Company Number: 2011AC000008

PATIENT
  Age: 83 Year
  Sex: Female

DRUGS (27)
  1. DIGOXIN [Suspect]
     Indication: ATRIAL FIBRILLATION
     Dosage: IV
     Route: 042
     Dates: start: 19980101
  2. CLONIDINE [Concomitant]
  3. ALBUTEROL [Concomitant]
  4. NITROGLYCERIN [Concomitant]
  5. LOVENOX [Concomitant]
  6. LISINOPRIL [Concomitant]
  7. METFORMIN [Concomitant]
  8. FLUOCINONIDE [Concomitant]
  9. DILTIAZEM [Concomitant]
  10. ASPIRIN [Concomitant]
  11. BUMETANIDE [Concomitant]
  12. KETOCONAZOLE [Concomitant]
  13. LIBRIUM [Concomitant]
  14. ATROVENT [Concomitant]
  15. AMITRIPTYLINE [Concomitant]
  16. CHLORODIAZEPOXIDE [Concomitant]
  17. VYCODIN [Concomitant]
  18. DIGOXIN [Suspect]
     Indication: PRODUCT USED FOR UNKNOWN INDICATION
     Dosage: 0.125 MG, DAILY, PO
     Route: 048
     Dates: start: 20080101, end: 20081231
  19. DIGOXIN [Suspect]
     Dosage: 125 MCG, QD, PO
     Route: 048
     Dates: start: 20070601
  20. VERAPAMIL [Concomitant]
  21. GLYBURIDE [Concomitant]
  22. HYDROCODONE BITARTRATE [Concomitant]
  23. OMEPRAZOLE [Concomitant]
  24. POTASSIUM [Concomitant]
  25. VERAPAMIL [Concomitant]
  26. TAMBOCOR [Concomitant]
  27. FLYAGYL [Concomitant]

REACTIONS (28)
  - URINARY TRACT INFECTION [None]
  - PNEUMONIA [None]
  - SEPSIS [None]
  - EMOTIONAL DISORDER [None]
  - ATRIAL FLUTTER [None]
  - MUSCLE SPASMS [None]
  - HYPOXIA [None]
  - ECONOMIC PROBLEM [None]
  - BLOOD PRESSURE INCREASED [None]
  - TACHYCARDIA [None]
  - PAIN [None]
  - MULTIPLE INJURIES [None]
  - DIVERTICULITIS [None]
  - REFUSAL OF TREATMENT BY PATIENT [None]
  - TREATMENT NONCOMPLIANCE [None]
  - STAPHYLOCOCCUS TEST POSITIVE [None]
  - DYSPNOEA EXERTIONAL [None]
  - ATRIAL FIBRILLATION [None]
  - ABSCESS [None]
  - APNOEA [None]
  - ACUTE MYOCARDIAL INFARCTION [None]
  - EMOTIONAL DISTRESS [None]
  - MENTAL STATUS CHANGES [None]
  - SOCIAL PROBLEM [None]
  - CARDIAC ARREST [None]
  - DIARRHOEA [None]
  - LUNG DISORDER [None]
  - LEFT ATRIAL DILATATION [None]
